FAERS Safety Report 12591516 (Version 2)
Quarter: 2016Q3

REPORT INFORMATION
  Report Type: Spontaneous
  Country: US (occurrence: US)
  Receive Date: 20160726
  Receipt Date: 20160809
  Transmission Date: 20161109
  Serious: Yes (Other)
  Sender: FDA-Public Use
  Company Number: US-HORIZON-PRE-0231-2016

PATIENT
  Age: 25 Year
  Sex: Female

DRUGS (1)
  1. PREDNISONE. [Suspect]
     Active Substance: PREDNISONE
     Indication: GRANULOMA
     Dosage: 100 MG WITH TAPER TO 60 MG DAILY OVER ONE WEEK, FURTHER TAPERING
     Route: 048

REACTIONS (1)
  - Retinal pigment epithelial tear [Unknown]
